FAERS Safety Report 25826492 (Version 2)
Quarter: 2025Q4

REPORT INFORMATION
  Report Type: Spontaneous
  Country: AU (occurrence: AU)
  Receive Date: 20250920
  Receipt Date: 20251014
  Transmission Date: 20260119
  Serious: Yes (Life-Threatening, Hospitalization, Other)
  Sender: ACCORD
  Company Number: AU-Accord-505321

PATIENT
  Age: 56 Year
  Sex: Female

DRUGS (2)
  1. HYDROXYCHLOROQUINE [Suspect]
     Active Substance: HYDROXYCHLOROQUINE
     Indication: Systemic lupus erythematosus
     Dosage: ESTIMATED CUMULATIVE HCQ DOSE ON PRESENTATION +LT;4000 G
  2. CYCLOSPORINE [Concomitant]
     Active Substance: CYCLOSPORINE
     Indication: Lupus nephritis

REACTIONS (6)
  - Cardiomyopathy [Recovering/Resolving]
  - Defect conduction intraventricular [Unknown]
  - Acute kidney injury [Recovered/Resolved]
  - Sinus node dysfunction [Unknown]
  - Atrial tachycardia [Unknown]
  - Ventricular tachycardia [Unknown]
